FAERS Safety Report 17534155 (Version 2)
Quarter: 2021Q4

REPORT INFORMATION
  Report Type: Spontaneous
  Country: IT (occurrence: IT)
  Receive Date: 20200312
  Receipt Date: 20211007
  Transmission Date: 20220303
  Serious: Yes (Hospitalization)
  Sender: FDA-Public Use
  Company Number: IT-MYLANLABS-2020M1027740

PATIENT
  Age: 64 Year
  Sex: Male

DRUGS (7)
  1. ATORVASTATIN [Suspect]
     Active Substance: ATORVASTATIN
     Indication: Dyslipidaemia
     Dosage: 80 MILLIGRAM, QD
     Route: 065
  2. EZETIMIBE\SIMVASTATIN [Suspect]
     Active Substance: EZETIMIBE\SIMVASTATIN
     Indication: Dyslipidaemia
     Dosage: UNK
     Route: 065
  3. TICAGRELOR [Concomitant]
     Active Substance: TICAGRELOR
     Indication: Product used for unknown indication
     Dosage: 90 MILLIGRAM
     Route: 065
  4. OMEPRAZOLE [Concomitant]
     Active Substance: OMEPRAZOLE
     Indication: Product used for unknown indication
     Dosage: 20 MILLIGRAM, QD
     Route: 065
  5. RAMIPRIL [Concomitant]
     Active Substance: RAMIPRIL
     Indication: Product used for unknown indication
     Dosage: 5 MILLIGRAM, QD
     Route: 065
  6. BISOPROLOL [Concomitant]
     Active Substance: BISOPROLOL
     Indication: Product used for unknown indication
     Dosage: 5 MILLIGRAM, QD
     Route: 065
  7. ASPIRIN [Concomitant]
     Active Substance: ASPIRIN
     Indication: Product used for unknown indication
     Dosage: 100 MILLIGRAM, QD
     Route: 065

REACTIONS (5)
  - Hepatitis cholestatic [Recovering/Resolving]
  - Rhabdomyolysis [Recovering/Resolving]
  - Splenomegaly [Recovering/Resolving]
  - Normochromic normocytic anaemia [Recovering/Resolving]
  - Acute kidney injury [Recovering/Resolving]
